FAERS Safety Report 14797203 (Version 2)
Quarter: 2018Q2

REPORT INFORMATION
  Report Type: Spontaneous
  Country: NL (occurrence: NL)
  Receive Date: 20180423
  Receipt Date: 20180509
  Transmission Date: 20180711
  Serious: Yes (Death, Other)
  Sender: FDA-Public Use
  Company Number: NL-BEH-2018089922

PATIENT
  Sex: Female

DRUGS (2)
  1. HAEMOCOMPLETTAN P [Suspect]
     Active Substance: FIBRINOGEN HUMAN
     Indication: HAEMORRHAGE
  2. HAEMOCOMPLETTAN P [Suspect]
     Active Substance: FIBRINOGEN HUMAN
     Indication: SURGERY
     Dosage: UNK
     Route: 065

REACTIONS (3)
  - Haemorrhage [Fatal]
  - Liver disorder [Fatal]
  - Drug ineffective [Unknown]
